FAERS Safety Report 6489638-8 (Version None)
Quarter: 2009Q4

REPORT INFORMATION
  Report Type: 
  Country: None (occurrence: None)
  Receive Date: 20091207
  Receipt Date: 20091123
  Transmission Date: 20100525
  Serious: Yes (Death)
  Sender: FDA-Public Use
  Company Number: 2009AC000417

PATIENT
  Age: 74 Year
  Sex: Male

DRUGS (23)
  1. DIGOXIN [Suspect]
     Indication: ATRIAL TACHYCARDIA
     Dosage: PO
     Route: 048
     Dates: start: 20051001
  2. DIGOXIN [Suspect]
     Dosage: 0.125 MG;QD;PO
     Route: 048
     Dates: start: 20050331
  3. CARDIZEM [Concomitant]
  4. ZOCOR [Concomitant]
  5. LASIX [Concomitant]
  6. POTASSIUM [Concomitant]
  7. ASPIRIN [Concomitant]
  8. CENTRUM [Concomitant]
  9. ZAROXOLYN [Concomitant]
  10. COUMADIN [Concomitant]
  11. PLAVIX [Concomitant]
  12. CALTRATE [Concomitant]
  13. ALLOPURINOL [Concomitant]
  14. METOLAZONE [Concomitant]
  15. TEMAZEPAM [Concomitant]
  16. ALLEGRO [Concomitant]
  17. TIKOSYN [Concomitant]
  18. SLO-MAG [Concomitant]
  19. NITROGLYCERIN [Concomitant]
  20. WARFARIN SODIUM [Concomitant]
  21. METHYLPREDNISOLONE [Concomitant]
  22. PROPOXYPHENE HCL CAP [Concomitant]
  23. PLAVIX [Concomitant]

REACTIONS (15)
  - ATRIAL FIBRILLATION [None]
  - ATRIAL TACHYCARDIA [None]
  - BACK PAIN [None]
  - BLOOD PRESSURE IMMEASURABLE [None]
  - CARDIAC ARREST [None]
  - CARDIAC FAILURE CONGESTIVE [None]
  - CONDITION AGGRAVATED [None]
  - ECONOMIC PROBLEM [None]
  - EMOTIONAL DISORDER [None]
  - FIBRIN D DIMER INCREASED [None]
  - INJURY [None]
  - MUSCLE SPASMS [None]
  - NECK PAIN [None]
  - PAIN [None]
  - SOCIAL AVOIDANT BEHAVIOUR [None]
